FAERS Safety Report 25640601 (Version 1)
Quarter: 2025Q3

REPORT INFORMATION
  Report Type: Spontaneous
  Country: US (occurrence: None)
  Receive Date: 20250801
  Receipt Date: 20250801
  Transmission Date: 20251021
  Serious: No
  Sender: FDA-CTU
  Company Number: None

PATIENT
  Age: 87 Year
  Sex: Male

DRUGS (1)
  1. XDEMVY [Suspect]
     Active Substance: LOTILANER
     Indication: Blepharitis
     Dosage: 1 GTT DROP(S) TWICE A DAY OPTHALMIC?
     Route: 047
     Dates: start: 20250627

REACTIONS (3)
  - Dizziness [None]
  - Balance disorder [None]
  - Eye pain [None]

NARRATIVE: CASE EVENT DATE: 20250725
